FAERS Safety Report 20419421 (Version 1)
Quarter: 2022Q1

REPORT INFORMATION
  Report Type: Spontaneous
  Country: CA (occurrence: CA)
  Receive Date: 20220203
  Receipt Date: 20220203
  Transmission Date: 20220423
  Serious: Yes (Hospitalization)
  Sender: FDA-Public Use
  Company Number: CA-ROCHE-2471124

PATIENT
  Age: 52 Year
  Sex: Male

DRUGS (6)
  1. CLONAZEPAM [Suspect]
     Active Substance: CLONAZEPAM
     Indication: Product used for unknown indication
     Dosage: 0.5 MG
     Route: 065
  2. XOLAIR [Suspect]
     Active Substance: OMALIZUMAB
     Indication: Asthma
     Dosage: 300 MG,ONCE IN 2 WEEKS
     Route: 058
     Dates: start: 20130605
  3. XOLAIR [Suspect]
     Active Substance: OMALIZUMAB
     Indication: Asthma
     Dosage: 300 MG,ONCE IN 2 WEEKS
     Route: 058
     Dates: start: 20180510
  4. XOLAIR [Suspect]
     Active Substance: OMALIZUMAB
     Indication: Asthma
     Dosage: 300 MG, EVERY 4 WEEKS
     Route: 065
     Dates: start: 20190313
  5. XOLAIR [Suspect]
     Active Substance: OMALIZUMAB
     Indication: Asthma
     Dosage: 300 MG, EVERY FOUR WEEKS
     Route: 058
  6. XOLAIR [Suspect]
     Active Substance: OMALIZUMAB
     Indication: Asthma
     Dosage: 300 MG, EVERY FOUR WEEKS
     Route: 058

REACTIONS (14)
  - Asthma [Not Recovered/Not Resolved]
  - Drug hypersensitivity [Unknown]
  - Influenza [Not Recovered/Not Resolved]
  - Cough [Unknown]
  - Dizziness [Unknown]
  - Malaise [Recovering/Resolving]
  - Herpes zoster [Recovering/Resolving]
  - Illness [Recovering/Resolving]
  - Nasopharyngitis [Recovering/Resolving]
  - Sinus disorder [Unknown]
  - Hyperhidrosis [Unknown]
  - Nasopharyngitis [Unknown]
  - Nasopharyngitis [Unknown]
  - Dermatitis atopic [Unknown]

NARRATIVE: CASE EVENT DATE: 20180525
